FAERS Safety Report 19410482 (Version 1)
Quarter: 2021Q2

REPORT INFORMATION
  Report Type: Spontaneous
  Country: US (occurrence: US)
  Receive Date: 20210611
  Receipt Date: 20210611
  Transmission Date: 20210717
  Serious: Yes (Other)
  Sender: FDA-Public Use
  Company Number: None

PATIENT
  Age: 32 Year
  Sex: Female

DRUGS (1)
  1. KESIMPTA [Suspect]
     Active Substance: OFATUMUMAB
     Dosage: OTHER
     Route: 058
     Dates: start: 20210607

REACTIONS (3)
  - Headache [None]
  - Nasopharyngitis [None]
  - Feeling cold [None]

NARRATIVE: CASE EVENT DATE: 20210609
